FAERS Safety Report 4831261-2 (Version None)
Quarter: 2005Q4

REPORT INFORMATION
  Report Type: 
  Country: None (occurrence: None)
  Receive Date: 20051116
  Receipt Date: 20051108
  Transmission Date: 20060501
  Serious: Yes (Other)
  Sender: FDA-Public Use
  Company Number: 2005S1000240

PATIENT
  Age: 75 Year
  Sex: Male

DRUGS (8)
  1. CUBICIN [Suspect]
     Indication: DEVICE RELATED INFECTION
     Dosage: 6.2 MG/KG;Q48H
  2. CUBICIN [Suspect]
     Indication: ENDOCARDITIS
     Dosage: 6.2 MG/KG;Q48H
  3. CUBICIN [Suspect]
     Indication: STAPHYLOCOCCAL INFECTION
     Dosage: 6.2 MG/KG;Q48H
  4. SULFAMETHOXAZOLE + TRIMETHOPRIM [Concomitant]
  5. IMIPENEM/CILASTATIN SODIUM [Concomitant]
  6. VANCOMYCIN [Concomitant]
  7. GENTAMICIN [Concomitant]
  8. RIFAMPIN [Concomitant]

REACTIONS (2)
  - CANDIDIASIS [None]
  - PROTEUS INFECTION [None]
